FAERS Safety Report 13329468 (Version 3)
Quarter: 2017Q2

REPORT INFORMATION
  Report Type: Report from Study
  Country: NL (occurrence: NL)
  Receive Date: 20170313
  Receipt Date: 20170606
  Transmission Date: 20170830
  Serious: Yes (Death, Other)
  Sender: FDA-Public Use
  Company Number: NL-BEH-2017078789

PATIENT
  Age: 79 Year
  Sex: Female
  Weight: 65 kg

DRUGS (3)
  1. HAEMOCOMPLETTAN P [Suspect]
     Active Substance: FIBRINOGEN HUMAN
     Indication: PROCEDURAL HAEMORRHAGE
     Dosage: 3 G, TOT
     Route: 042
     Dates: start: 20110408
  2. DESMOPRESSIN [Concomitant]
     Active Substance: DESMOPRESSIN
     Dosage: 0.3 ?G/KG, UNK
     Route: 042
     Dates: start: 20110408, end: 20110408
  3. TRANEXAMIC ACID. [Concomitant]
     Active Substance: TRANEXAMIC ACID
     Indication: PROCOAGULANT THERAPY
     Dosage: 2 G, UNK
     Route: 042
     Dates: start: 20110408, end: 20110408

REACTIONS (9)
  - Seizure [Fatal]
  - Thoracotomy [Fatal]
  - Monoparesis [Fatal]
  - Myocardial infarction [Fatal]
  - Sedation [Fatal]
  - Renal failure [Fatal]
  - Cerebral infarction [Fatal]
  - Thrombotic stroke [Fatal]
  - Brain oedema [Fatal]

NARRATIVE: CASE EVENT DATE: 20110409
